FAERS Safety Report 7113186-5 (Version None)
Quarter: 2010Q4

REPORT INFORMATION
  Report Type: 
  Country: None (occurrence: None)
  Receive Date: 20101119
  Receipt Date: 20091030
  Transmission Date: 20110411
  Serious: No
  Sender: FDA-Public Use
  Company Number: A0812591A

PATIENT
  Age: 68 Year
  Sex: Female

DRUGS (5)
  1. WELLBUTRIN SR [Suspect]
     Indication: DEPRESSION
     Dosage: 100MG PER DAY
     Route: 048
     Dates: start: 20090910
  2. CELEXA [Concomitant]
  3. ATIVAN [Concomitant]
  4. CYTOMEL [Concomitant]
  5. ARMOUR THYROID [Concomitant]

REACTIONS (1)
  - ALOPECIA [None]
